FAERS Safety Report 7675459-7 (Version None)
Quarter: 2011Q3

REPORT INFORMATION
  Report Type: 
  Country: None (occurrence: None)
  Receive Date: 20110810
  Receipt Date: 20110805
  Transmission Date: 20111222
  Serious: Yes (Life-Threatening, Hospitalization)
  Sender: FDA-Public Use
  Company Number: FR-PFIZER INC-2011179277

PATIENT
  Age: 77 Year
  Sex: Female

DRUGS (15)
  1. EFFEXOR XR [Suspect]
     Dosage: UNK
     Route: 048
     Dates: start: 20110618, end: 20110621
  2. COUMADIN [Suspect]
     Dosage: UNK
     Route: 048
     Dates: start: 20110522, end: 20110621
  3. SECTRAL [Concomitant]
  4. OXAZEPAM [Concomitant]
  5. ASPIRIN [Suspect]
     Dosage: 1 DF, 1X/DAY
     Route: 048
  6. PERINDOPRIL ERBUMINE [Concomitant]
  7. PLAVIX [Concomitant]
  8. OMEPRAZOLE [Concomitant]
  9. AMITRIPTYLINE HCL [Concomitant]
  10. EFFEXOR XR [Suspect]
     Dosage: UNK
     Route: 048
     Dates: start: 20110628, end: 20110629
  11. PAROXETINE HCL [Suspect]
     Dosage: 1 DF, 1X/DAY
     Route: 048
     Dates: start: 20110415, end: 20110617
  12. VASTAREL [Concomitant]
  13. ATORVASTATIN CALCIUM [Concomitant]
  14. LOVENOX [Concomitant]
  15. INSULIN [Concomitant]

REACTIONS (2)
  - RECTAL HAEMORRHAGE [None]
  - SHOCK HAEMORRHAGIC [None]
